FAERS Safety Report 16476468 (Version 2)
Quarter: 2019Q3

REPORT INFORMATION
  Report Type: Report from Study
  Country: AR (occurrence: AR)
  Receive Date: 20190626
  Receipt Date: 20190709
  Transmission Date: 20191004
  Serious: Yes (Hospitalization, Other)
  Sender: FDA-Public Use
  Company Number: PHHY2019AR144956

PATIENT
  Age: 82 Year
  Sex: Male

DRUGS (1)
  1. EXFORGE [Suspect]
     Active Substance: AMLODIPINE BESYLATE\VALSARTAN
     Indication: HYPERTENSION
     Dosage: 2 DF, QD (AMLODIPINE 5, VALSARTAN 80) (UNITS NOT PROVIDED)
     Route: 065

REACTIONS (13)
  - Vertigo [Unknown]
  - Headache [Unknown]
  - Oedema peripheral [Recovering/Resolving]
  - Inappropriate schedule of product administration [Unknown]
  - Head discomfort [Unknown]
  - Diabetes mellitus [Unknown]
  - Tinnitus [Unknown]
  - Arthritis [Unknown]
  - Stress [Unknown]
  - Vomiting [Unknown]
  - Blood glucose increased [Unknown]
  - Blood pressure fluctuation [Unknown]
  - Deafness unilateral [Unknown]

NARRATIVE: CASE EVENT DATE: 201808
